FAERS Safety Report 5963552-6 (Version None)
Quarter: 2008Q4

REPORT INFORMATION
  Report Type: 
  Country: None (occurrence: None)
  Receive Date: 20081124
  Receipt Date: 20080320
  Transmission Date: 20090506
  Serious: No
  Sender: FDA-Public Use
  Company Number: US-BAYER-200811297BCC

PATIENT
  Age: 91 Year
  Sex: Female
  Weight: 73 kg

DRUGS (1)
  1. ALEVE [Suspect]
     Indication: PAIN
     Dosage: TOTAL DAILY DOSE: 220 MG  UNIT DOSE: 220 MG
     Route: 048
     Dates: start: 20080317

REACTIONS (2)
  - ANGER [None]
  - NAUSEA [None]
